FAERS Safety Report 5597203-X (Version None)
Quarter: 2007Q4

REPORT INFORMATION
  Report Type: 
  Country: None (occurrence: None)
  Receive Date: 20071221
  Receipt Date: 20070919
  Transmission Date: 20080405
  Serious: No
  Sender: FDA-Public Use
  Company Number: US-CVT-070158

PATIENT
  Age: 77 Year
  Sex: Male

DRUGS (3)
  1. RANEXA [Suspect]
     Indication: ANGINA PECTORIS
     Dosage: 500 MG, BID, ORAL ; 250 MG, BID, ORAL ; 500 MG, BID, ORAL
     Route: 048
     Dates: start: 20070301, end: 20070101
  2. RANEXA [Suspect]
     Indication: ANGINA PECTORIS
     Dosage: 500 MG, BID, ORAL ; 250 MG, BID, ORAL ; 500 MG, BID, ORAL
     Route: 048
     Dates: start: 20070709, end: 20070815
  3. RANEXA [Suspect]
     Indication: ANGINA PECTORIS
     Dosage: 500 MG, BID, ORAL ; 250 MG, BID, ORAL ; 500 MG, BID, ORAL
     Route: 048
     Dates: start: 20070816, end: 20070919

REACTIONS (3)
  - BACK PAIN [None]
  - DIZZINESS [None]
  - FALL [None]
